FAERS Safety Report 8532680-3 (Version None)
Quarter: 2012Q2

REPORT INFORMATION
  Report Type: 
  Country: None (occurrence: None)
  Receive Date: 20120412
  Receipt Date: 20091005
  Transmission Date: 20120825
  Serious: Yes (Other)
  Sender: FDA-Public Use
  Company Number: PHEH2009US13051

PATIENT
  Age: 48 Year
  Sex: Male

DRUGS (6)
  1. COGENTIN [Concomitant]
  2. CLOZAPINE [Suspect]
  3. COLACE (DOCUSATE SODIUM) [Concomitant]
  4. LOVASTATIN [Concomitant]
  5. CLOZARIL [Suspect]
  6. INDERAL [Concomitant]

REACTIONS (1)
  - CONVULSION [None]
